FAERS Safety Report 4420035-2 (Version None)
Quarter: 2004Q2

REPORT INFORMATION
  Report Type: 
  Country: None (occurrence: None)
  Receive Date: 20040622
  Receipt Date: 20030717
  Transmission Date: 20050107
  Serious: Yes (Hospitalization)
  Sender: FDA-Public Use
  Company Number: 342667

PATIENT
  Age: 61 Year
  Sex: Male
  Weight: 73 kg

DRUGS (3)
  1. XELODA [Suspect]
     Indication: COLON CANCER
     Dosage: 3500 MG DAILY ORAL
     Route: 048
     Dates: start: 20030616, end: 20030625
  2. ASPIRIN [Concomitant]
  3. IMODIUM [Concomitant]

REACTIONS (1)
  - ANGINA PECTORIS [None]
